FAERS Safety Report 16090205 (Version 1)
Quarter: 2019Q1

REPORT INFORMATION
  Report Type: Spontaneous
  Country: US (occurrence: US)
  Receive Date: 20190319
  Receipt Date: 20190319
  Transmission Date: 20190418
  Serious: No
  Sender: FDA-Public Use
  Company Number: US-SA-2019SA073257

PATIENT

DRUGS (2)
  1. OXYMETAZOLINE HYDROCHLORIDE. [Suspect]
     Active Substance: OXYMETAZOLINE HYDROCHLORIDE
     Dosage: UNK UNK, UNK
  2. ZANTAC 75 [Suspect]
     Active Substance: RANITIDINE HYDROCHLORIDE

REACTIONS (4)
  - Mood swings [Unknown]
  - Confusional state [Unknown]
  - Depression [Unknown]
  - Hallucination [Unknown]
